FAERS Safety Report 17773696 (Version 3)
Quarter: 2020Q2

REPORT INFORMATION
  Report Type: Spontaneous
  Country: US (occurrence: US)
  Receive Date: 20200512
  Receipt Date: 20200525
  Transmission Date: 20200714
  Serious: Yes (Hospitalization, Other)
  Sender: FDA-Public Use
  Company Number: US-009507513-2005USA000842

PATIENT
  Sex: Male

DRUGS (3)
  1. JANUMET [Suspect]
     Active Substance: METFORMIN HYDROCHLORIDE\SITAGLIPTIN PHOSPHATE
     Dosage: UNK
     Route: 048
     Dates: start: 20180511, end: 20190430
  2. JANUVIA [Suspect]
     Active Substance: SITAGLIPTIN PHOSPHATE
     Indication: TYPE 2 DIABETES MELLITUS
     Dosage: UNK
  3. JANUMET XR [Suspect]
     Active Substance: METFORMIN HYDROCHLORIDE\SITAGLIPTIN PHOSPHATE
     Dosage: 2 TABLETS, ONCE DAILY WITH THE EVENING MEAL
     Route: 048
     Dates: start: 20180511, end: 20190430

REACTIONS (14)
  - Pancreatitis [Recovering/Resolving]
  - Respiratory failure [Unknown]
  - Clostridium bacteraemia [Unknown]
  - Joint arthroplasty [Unknown]
  - Taste disorder [Unknown]
  - Bile duct obstruction [Unknown]
  - Acute kidney injury [Unknown]
  - Neutropenic sepsis [Unknown]
  - Constipation [Unknown]
  - Pancreatic carcinoma stage III [Not Recovered/Not Resolved]
  - Knee arthroplasty [Unknown]
  - Diabetic nephropathy [Unknown]
  - Jaundice [Unknown]
  - Hyperglycaemia [Unknown]

NARRATIVE: CASE EVENT DATE: 20180816
